FAERS Safety Report 12909795 (Version 2)
Quarter: 2016Q4

REPORT INFORMATION
  Report Type: Spontaneous
  Country: DE (occurrence: DE)
  Receive Date: 20161104
  Receipt Date: 20161125
  Transmission Date: 20170207
  Serious: Yes (Hospitalization, Other)
  Sender: FDA-Public Use
  Company Number: DE-ROCHE-1850308

PATIENT
  Sex: Female
  Weight: 124 kg

DRUGS (14)
  1. MABTHERA [Suspect]
     Active Substance: RITUXIMAB
     Indication: GRANULOMATOSIS WITH POLYANGIITIS
     Dosage: 1ST CYCLE, 1ST ADMINISTRATION ON 15/MAR/2013, 2ND ADMINSTRATION ON 28/MAR/2013; 2ND CYCLE, 1ST ADMIN
     Route: 042
  2. PREDNISOLON [Suspect]
     Active Substance: PREDNISOLONE
     Indication: GRANULOMATOSIS WITH POLYANGIITIS
     Route: 048
     Dates: start: 2008
  3. MCP [Concomitant]
     Active Substance: METOCLOPRAMIDE HYDROCHLORIDE
     Indication: VOMITING
  4. CARVEDILOL. [Concomitant]
     Active Substance: CARVEDILOL
     Route: 065
  5. FLOXAL [Concomitant]
     Active Substance: OFLOXACIN
     Route: 065
  6. MCP [Concomitant]
     Active Substance: METOCLOPRAMIDE HYDROCHLORIDE
     Indication: NAUSEA
     Route: 065
  7. XELEVIA [Concomitant]
     Active Substance: SITAGLIPTIN PHOSPHATE
     Route: 065
  8. AMITRIPTILINA [Concomitant]
     Active Substance: AMITRIPTYLINE HYDROCHLORIDE
     Route: 065
  9. VALSARTAN HEXAL COMP [Concomitant]
     Active Substance: VALSARTAN
     Dosage: 160/25 MG
     Route: 065
  10. TILIDIN [Concomitant]
     Active Substance: NALOXONE HYDROCHLORIDE\TILIDINE HYDROCHLORIDE
     Dosage: 50/4
     Route: 065
  11. METHOTREXATE. [Suspect]
     Active Substance: METHOTREXATE
     Indication: GRANULOMATOSIS WITH POLYANGIITIS
     Route: 058
     Dates: start: 20130816, end: 20160919
  12. PANTOZOL [Concomitant]
     Active Substance: PANTOPRAZOLE SODIUM
     Route: 065
  13. DEKRISTOL [Concomitant]
     Active Substance: CHOLECALCIFEROL
     Route: 065
  14. ADENURIC [Concomitant]
     Active Substance: FEBUXOSTAT
     Route: 065

REACTIONS (3)
  - Clostridium colitis [Recovering/Resolving]
  - Pneumonitis [Unknown]
  - Urinary tract infection bacterial [Recovered/Resolved]

NARRATIVE: CASE EVENT DATE: 20160807
